FAERS Safety Report 24433963 (Version 1)
Quarter: 2024Q4

REPORT INFORMATION
  Report Type: Report from Study
  Country: ZA (occurrence: ZA)
  Receive Date: 20241014
  Receipt Date: 20241014
  Transmission Date: 20250115
  Serious: Yes (Other)
  Sender: ALEXION PHARMACEUTICALS
  Company Number: ZA-AstraZeneca-CH-00719541A

PATIENT
  Age: 84 Year

DRUGS (9)
  1. BUDESONIDE\FORMOTEROL [Suspect]
     Active Substance: BUDESONIDE\FORMOTEROL
     Indication: Asthma
     Dosage: 60 MILLIGRAM
  2. UROMAX CO 0.5/0.4 MG [Concomitant]
     Indication: Prostatomegaly
  3. SERDEP 50 MG [Concomitant]
     Indication: Mental disorder
  4. TELMISARTAN [Concomitant]
     Active Substance: TELMISARTAN
     Indication: Hypertension
  5. TRYZETOR PLUS 10/40 MG [Concomitant]
     Indication: Hyperlipidaemia
  6. OMNAIR 120 DOSE 50 MCG [Concomitant]
  7. MACRODANTIN 100 MG [Concomitant]
  8. FLUANXOL 0.5 MG [Concomitant]
  9. FLUANXOL 1 MG [Concomitant]

REACTIONS (3)
  - Influenza [Unknown]
  - Dementia [Unknown]
  - Drug hypersensitivity [Unknown]
